FAERS Safety Report 4404821-0 (Version None)
Quarter: 2004Q3

REPORT INFORMATION
  Report Type: 
  Country: None (occurrence: None)
  Receive Date: 20040716
  Receipt Date: 20040708
  Transmission Date: 20050211
  Serious: Yes (Other)
  Sender: FDA-Public Use
  Company Number: HQWYE970309JUL04

PATIENT
  Age: 55 Year
  Sex: Female
  Weight: 56.75 kg

DRUGS (4)
  1. INDERAL LA [Suspect]
     Indication: BLOOD PRESSURE
     Dosage: 60 MG 1X PER 1 DAY, ORAL
     Route: 048
     Dates: start: 20040101, end: 20040601
  2. ADVIL [Concomitant]
  3. ACTIFED [Concomitant]
  4. NEXIUM [Concomitant]

REACTIONS (7)
  - ALOPECIA [None]
  - ARRHYTHMIA [None]
  - ATRIAL FIBRILLATION [None]
  - DIZZINESS [None]
  - DYSPNOEA [None]
  - FEELING ABNORMAL [None]
  - HOARSENESS [None]
